FAERS Safety Report 5963730-6 (Version None)
Quarter: 2008Q4

REPORT INFORMATION
  Report Type: 
  Country: None (occurrence: None)
  Receive Date: 20081121
  Receipt Date: 20081121
  Transmission Date: 20090506
  Serious: Yes (Life-Threatening, Hospitalization)
  Sender: FDA-Public Use
  Company Number: None

PATIENT
  Sex: Female
  Weight: 68.0396 kg

DRUGS (1)
  1. TOPAMAX [Suspect]
     Indication: NEUROPATHY PERIPHERAL

REACTIONS (2)
  - BLOOD PRESSURE INCREASED [None]
  - PRINZMETAL ANGINA [None]
